FAERS Safety Report 25666111 (Version 1)
Quarter: 2025Q3

REPORT INFORMATION
  Report Type: Spontaneous
  Country: GB (occurrence: GB)
  Receive Date: 20250811
  Receipt Date: 20250811
  Transmission Date: 20251020
  Serious: Yes (Other)
  Sender: CIPLA
  Company Number: GB-MHRA-MED-202507270924059870-WJLCV

PATIENT

DRUGS (3)
  1. ALBUTEROL [Suspect]
     Active Substance: ALBUTEROL
     Indication: Product used for unknown indication
     Route: 065
     Dates: end: 20241025
  2. ALBUTEROL [Suspect]
     Active Substance: ALBUTEROL
     Route: 065
     Dates: end: 20241026
  3. BUDESONIDE [Concomitant]
     Active Substance: BUDESONIDE
     Indication: Product used for unknown indication
     Route: 065
     Dates: start: 20241024

REACTIONS (3)
  - Wheezing [Unknown]
  - Muscle spasms [Unknown]
  - Dizziness exertional [Not Recovered/Not Resolved]

NARRATIVE: CASE EVENT DATE: 20241024
